FAERS Safety Report 5822193-1 (Version None)
Quarter: 2008Q3

REPORT INFORMATION
  Report Type: 
  Country: None (occurrence: None)
  Receive Date: 20080722
  Receipt Date: 20080722
  Transmission Date: 20090109
  Serious: No
  Sender: FDA-Public Use
  Company Number: None

PATIENT
  Age: 35 Year
  Sex: Female
  Weight: 63.5 kg

DRUGS (1)
  1. OPTIRAY 350 [Suspect]
     Indication: COMPUTERISED TOMOGRAM
     Dosage: 100ML X1
     Dates: start: 20080714

REACTIONS (4)
  - ORBITAL OEDEMA [None]
  - PRURITUS [None]
  - TONGUE DISORDER [None]
  - URTICARIA [None]
